FAERS Safety Report 12293028 (Version 2)
Quarter: 2016Q2

REPORT INFORMATION
  Report Type: Report from Study
  Country: US (occurrence: US)
  Receive Date: 20160421
  Receipt Date: 20160427
  Transmission Date: 20160815
  Serious: Yes (Other)
  Sender: FDA-Public Use
  Company Number: US-AMGEN-USASL2016042596

PATIENT
  Age: 74 Year
  Sex: Female
  Weight: 49.89 kg

DRUGS (3)
  1. REPATHA [Suspect]
     Active Substance: EVOLOCUMAB
     Indication: ARTERIOSCLEROSIS CORONARY ARTERY
  2. REPATHA [Suspect]
     Active Substance: EVOLOCUMAB
     Indication: HYPERCHOLESTEROLAEMIA
  3. REPATHA [Suspect]
     Active Substance: EVOLOCUMAB
     Indication: HYPERCHOLESTEROLAEMIA
     Dosage: 140 MG, Q2WK
     Route: 058
     Dates: start: 201512, end: 20160405

REACTIONS (7)
  - Injection site mass [Not Recovered/Not Resolved]
  - Contusion [Unknown]
  - Muscle spasms [Unknown]
  - Pain in extremity [Unknown]
  - Erythema [Unknown]
  - Arthralgia [Unknown]
  - Injection site bruising [Unknown]

NARRATIVE: CASE EVENT DATE: 201512
